FAERS Safety Report 15952537 (Version 3)
Quarter: 2019Q2

REPORT INFORMATION
  Report Type: Spontaneous
  Country: US (occurrence: US)
  Receive Date: 20190212
  Receipt Date: 20190419
  Transmission Date: 20190711
  Serious: No
  Sender: FDA-Public Use
  Company Number: US-PFIZER INC-2019050809

PATIENT
  Age: 67 Year
  Sex: Female

DRUGS (1)
  1. ESTRING [Suspect]
     Active Substance: ESTRADIOL
     Indication: OESTROGENIC EFFECT
     Dosage: 2 MG, EVERY 3 MONTHS (FOR 89 DAYS)
     Dates: start: 201804, end: 20190203

REACTIONS (2)
  - Constipation [Recovered/Resolved]
  - Skin fissures [Unknown]

NARRATIVE: CASE EVENT DATE: 20190114
